FAERS Safety Report 7808353-9 (Version None)
Quarter: 2011Q4

REPORT INFORMATION
  Report Type: 
  Country: None (occurrence: None)
  Receive Date: 20111007
  Receipt Date: 20110923
  Transmission Date: 20120403
  Serious: Yes (Other)
  Sender: FDA-Public Use
  Company Number: AXC-2011-000439

PATIENT

DRUGS (2)
  1. URSODIOL [Suspect]
     Indication: BILIARY CIRRHOSIS PRIMARY
  2. URSODIOL [Suspect]
     Indication: AUTOIMMUNE HEPATITIS

REACTIONS (2)
  - JAUNDICE [None]
  - HEPATIC FUNCTION ABNORMAL [None]
